FAERS Safety Report 7757852-7 (Version None)
Quarter: 2011Q3

REPORT INFORMATION
  Report Type: 
  Country: None (occurrence: None)
  Receive Date: 20110918
  Receipt Date: 20110906
  Transmission Date: 20111222
  Serious: Yes (Other)
  Sender: FDA-Public Use
  Company Number: IT-BRISTOL-MYERS SQUIBB COMPANY-16057986

PATIENT
  Age: 9 Year
  Sex: Male

DRUGS (2)
  1. GLIADEL [Suspect]
     Indication: EPENDYMOMA
     Dosage: CARMUSTINE WATER.
  2. ETOPOSIDE [Suspect]
     Indication: EPENDYMOMA
     Dosage: FOR 21DAYS/MTH.
     Route: 048

REACTIONS (3)
  - HYPOTONIA [None]
  - NEOPLASM MALIGNANT [None]
  - PARAESTHESIA [None]
